FAERS Safety Report 23429205 (Version 5)
Quarter: 2024Q2

REPORT INFORMATION
  Report Type: Spontaneous
  Country: US (occurrence: US)
  Receive Date: 20240122
  Receipt Date: 20240430
  Transmission Date: 20240716
  Serious: Yes (Hospitalization, Other)
  Sender: FDA-Public Use
  Company Number: US-SA-SAC20221020001146

PATIENT
  Age: 43 Year
  Sex: Female

DRUGS (4)
  1. DUPIXENT [Suspect]
     Active Substance: DUPILUMAB
     Indication: Asthma
     Dosage: 2 DF, 1X
     Route: 058
     Dates: start: 202210, end: 202210
  2. DUPIXENT [Suspect]
     Active Substance: DUPILUMAB
     Dosage: 300 MG, QOW
     Route: 058
     Dates: start: 202210
  3. DROXIDOPA [Concomitant]
     Active Substance: DROXIDOPA
     Dosage: UNK
  4. TRULANCE [Concomitant]
     Active Substance: PLECANATIDE

REACTIONS (14)
  - Epilepsy [Unknown]
  - Blindness [Unknown]
  - Visual impairment [Unknown]
  - Ligament sprain [Unknown]
  - Face injury [Unknown]
  - Concussion [Unknown]
  - Arthropathy [Unknown]
  - Head injury [Unknown]
  - Memory impairment [Unknown]
  - Muscle strain [Recovering/Resolving]
  - Tendon injury [Recovered/Resolved]
  - Headache [Unknown]
  - Dizziness [Unknown]
  - Constipation [Unknown]

NARRATIVE: CASE EVENT DATE: 20231201
